FAERS Safety Report 17008293 (Version 4)
Quarter: 2019Q4

REPORT INFORMATION
  Report Type: Spontaneous
  Country: JP (occurrence: JP)
  Receive Date: 20191108
  Receipt Date: 20191227
  Transmission Date: 20200122
  Serious: Yes (Other)
  Sender: FDA-Public Use
  Company Number: JP-GLAXOSMITHKLINE-JP2019JPN202208

PATIENT
  Age: 75 Year
  Sex: Female
  Weight: 72 kg

DRUGS (17)
  1. XYZAL TABLETS [Concomitant]
     Dosage: 5 MG, QD
  2. BASEN OD TABLETS [Concomitant]
     Dosage: 0.3 MG, BID,BEFORE MORINIG AND DINNER
  3. KIPRES TABLETS [Concomitant]
     Dosage: 10 MG, QD
  4. BIOFERMIN TABLETS (BIFIDOBACTERIUM BIFIDUM) [Concomitant]
     Dosage: 1 DF, TID,AFER MORINIG,LUNCH AND DINNER
  5. MEPOLIZUMAB [Suspect]
     Active Substance: MEPOLIZUMAB
     Indication: ASTHMA
     Dosage: 100 MG
     Route: 058
     Dates: start: 20160907, end: 20170906
  6. ALBUMIN TANNATE [Concomitant]
     Active Substance: ALBUMIN BOVINE\TANNIC ACID
     Dosage: 1 G, TID,AFER MORINIG,LUNCH AND DINNER
  7. ASVERIN (TIPEPIDINE HIBENZATE) [Concomitant]
     Active Substance: TIPEPIDINE HIBENZATE
     Dosage: 20 MG, TID,AFER MORINIG,LUNCH AND DINNER
  8. TAKECAB TABLETS [Concomitant]
     Dosage: 10 MG, QD,AFTER MORNING
  9. CALONAL TABLET [Concomitant]
     Dosage: 400 MG, TID,AFER MORINIG,LUNCH AND DINNER
  10. CLARITHROMYCIN TABLETS [Concomitant]
     Active Substance: CLARITHROMYCIN
     Dosage: 200 MG, BID,AFER MORNING AND DINNER
  11. MICARDIS [Concomitant]
     Active Substance: TELMISARTAN
     Dosage: 40 MG, QD,AFTER DINNER
  12. SYMBICORT [Concomitant]
     Active Substance: BUDESONIDE\FORMOTEROL FUMARATE DIHYDRATE
     Dosage: UNK, BID
  13. AMLODIPINE OD TABLETS [Concomitant]
     Active Substance: AMLODIPINE BESYLATE
     Dosage: 10 MG, QD,AFTER DINNER
  14. MEPOLIZUMAB [Suspect]
     Active Substance: MEPOLIZUMAB
     Dosage: 100 MG
     Route: 058
     Dates: start: 20180214, end: 20181219
  15. EQUA TABLETS [Concomitant]
     Dosage: 50 MG, QD,AFTER MORNING
  16. METGLUCO TABLETS [Concomitant]
     Dosage: 500 MG, BID,AFTER MORINIG AND DINNER
  17. MUCOSOLVAN L TABLET [Concomitant]
     Dosage: 45 MG, QD,AFETR DINNER

REACTIONS (2)
  - Hypothyroidism [Recovered/Resolved]
  - Oedema peripheral [Recovered/Resolved]

NARRATIVE: CASE EVENT DATE: 20170419
